FAERS Safety Report 4821611-5 (Version None)
Quarter: 2005Q4

REPORT INFORMATION
  Report Type: 
  Country: None (occurrence: None)
  Receive Date: 20051107
  Receipt Date: 20050722
  Transmission Date: 20060501
  Serious: Yes (Death, Hospitalization)
  Sender: FDA-Public Use
  Company Number: US-MERCK-0507USA03858

PATIENT
  Age: 65 Year
  Sex: Male
  Weight: 108 kg

DRUGS (11)
  1. VIOXX [Suspect]
     Indication: ARTHRALGIA
     Route: 048
     Dates: start: 19990831, end: 20000201
  2. VIOXX [Suspect]
     Route: 048
     Dates: start: 20031126, end: 20040517
  3. VIOXX [Suspect]
     Route: 048
     Dates: end: 19990622
  4. FUROSEMIDE [Concomitant]
     Indication: HYPERTENSION
     Route: 065
     Dates: start: 19971001, end: 20030901
  5. AMBIEN [Concomitant]
     Indication: SLEEP DISORDER THERAPY
     Route: 065
     Dates: start: 20031126
  6. AMBIEN [Concomitant]
     Route: 065
     Dates: start: 20040225
  7. CATAPRES [Concomitant]
     Indication: POLYURIA
     Route: 065
     Dates: start: 19971001, end: 20030901
  8. LEXXEL [Concomitant]
     Indication: POLYURIA
     Route: 065
     Dates: start: 19970701, end: 20040517
  9. K-DUR 10 [Concomitant]
     Indication: HYPERTENSION
     Route: 065
  10. OXYCONTIN [Concomitant]
     Route: 048
     Dates: start: 20040225
  11. CELEBREX [Suspect]
     Route: 065

REACTIONS (25)
  - ACUTE MYOCARDIAL INFARCTION [None]
  - ANDROGEN DEFICIENCY [None]
  - ANKYLOSING SPONDYLITIS [None]
  - ARRHYTHMIA [None]
  - ARTERIOSCLEROSIS CORONARY ARTERY [None]
  - ARTHRALGIA [None]
  - BACK PAIN [None]
  - CARDIAC TAMPONADE [None]
  - CARDIOMEGALY [None]
  - CORONARY ARTERY DISEASE [None]
  - CORONARY ARTERY STENOSIS [None]
  - DIZZINESS [None]
  - FALL [None]
  - GASTRIC DISORDER [None]
  - HEADACHE [None]
  - HYPERTENSION [None]
  - LIMB INJURY [None]
  - MUSCULOSKELETAL CHEST PAIN [None]
  - MYOCARDIAL RUPTURE [None]
  - MYOFASCIAL PAIN SYNDROME [None]
  - NECK PAIN [None]
  - PAIN [None]
  - PRURITUS [None]
  - SPONDYLITIS [None]
  - TENDERNESS [None]
